FAERS Safety Report 10206134 (Version 1)
Quarter: 2014Q2

REPORT INFORMATION
  Report Type: Spontaneous
  Country: US (occurrence: US)
  Receive Date: 20140530
  Receipt Date: 20140530
  Transmission Date: 20141212
  Serious: No
  Sender: FDA-Public Use
  Company Number: US-PFIZER INC-2014148221

PATIENT
  Age: 56 Year
  Sex: Male

DRUGS (1)
  1. CHANTIX [Suspect]
     Dosage: UNK

REACTIONS (7)
  - Tobacco user [Unknown]
  - Anxiety [Unknown]
  - Nervousness [Unknown]
  - Agitation [Unknown]
  - Chest pain [Unknown]
  - Insomnia [Unknown]
  - Abdominal pain upper [Unknown]
